FAERS Safety Report 8311390-1 (Version None)
Quarter: 2012Q2

REPORT INFORMATION
  Report Type: 
  Country: None (occurrence: None)
  Receive Date: 20120425
  Receipt Date: 20110505
  Transmission Date: 20120825
  Serious: No
  Sender: FDA-Public Use
  Company Number: US-MYLANLABS-2011S1009329

PATIENT
  Age: 64 Year
  Sex: Female

DRUGS (2)
  1. DUONEB [Suspect]
     Indication: EMPHYSEMA
     Dosage: Q3-4HRS
     Route: 055
     Dates: start: 20110501
  2. DUONEB [Suspect]
     Dosage: Q3-4HRS
     Route: 055
     Dates: start: 20110501

REACTIONS (2)
  - EMPHYSEMA [None]
  - DRUG INEFFECTIVE [None]
